FAERS Safety Report 6199257-9 (Version None)
Quarter: 2009Q2

REPORT INFORMATION
  Report Type: 
  Country: None (occurrence: None)
  Receive Date: 20090519
  Receipt Date: 20090519
  Transmission Date: 20091009
  Serious: Yes (Death)
  Sender: FDA-Public Use
  Company Number: None

PATIENT
  Sex: Female
  Weight: 33 kg

DRUGS (1)
  1. ZYVOX [Suspect]
     Indication: ENTEROCOCCAL BACTERAEMIA
     Dosage: 200 MG TWICE DAILY IV
     Route: 042
     Dates: start: 20090112, end: 20090117

REACTIONS (1)
  - NO THERAPEUTIC RESPONSE [None]
